FAERS Safety Report 15841544 (Version 5)
Quarter: 2025Q4

REPORT INFORMATION
  Report Type: Spontaneous
  Country: EU (occurrence: EU)
  Receive Date: 20190118
  Receipt Date: 20251112
  Transmission Date: 20260117
  Serious: Yes (Other)
  Sender: AUROBINDO
  Company Number: EU-AUROBINDO-AUR-APL-2019-000565

PATIENT
  Age: 44 Year
  Sex: Female

DRUGS (11)
  1. ATORVASTATIN [Suspect]
     Active Substance: ATORVASTATIN
     Indication: Glomerulonephritis membranous
     Dosage: UNK
     Route: 065
  2. EZETIMIBE [Suspect]
     Active Substance: EZETIMIBE
     Indication: Glomerulonephritis membranous
     Dosage: UNK
     Route: 065
  3. FUROSEMIDE [Suspect]
     Active Substance: FUROSEMIDE
     Indication: Glomerulonephritis membranous
     Dosage: UNK
     Route: 065
  4. LISINOPRIL [Suspect]
     Active Substance: LISINOPRIL
     Indication: Glomerulonephritis membranous
     Dosage: UNK
     Route: 065
  5. ABACAVIR [Concomitant]
     Active Substance: ABACAVIR
     Indication: Acquired immunodeficiency syndrome
     Dosage: UNK
     Route: 065
  6. LAMIVUDINE [Concomitant]
     Active Substance: LAMIVUDINE
     Indication: Acquired immunodeficiency syndrome
     Dosage: UNK
     Route: 065
  7. RALTEGRAVIR [Concomitant]
     Active Substance: RALTEGRAVIR
     Indication: Acquired immunodeficiency syndrome
     Dosage: UNK
     Route: 065
  8. SULFAMETHOXAZOLE\TRIMETHOPRIM [Concomitant]
     Active Substance: SULFAMETHOXAZOLE\TRIMETHOPRIM
     Indication: Infection prophylaxis
     Dosage: UNK
     Route: 065
  9. METHYLPREDNISOLONE [Concomitant]
     Active Substance: METHYLPREDNISOLONE
     Indication: Glomerulonephritis membranous
     Dosage: UNK GRAM, ONCE A DAY
     Route: 065
  10. PREDNISOLONE [Concomitant]
     Active Substance: PREDNISOLONE
     Indication: Glomerulonephritis membranous
     Dosage: 60 MILLIGRAM, ONCE A DAY IN MONTHS 1, 3 AND 5
     Route: 065
  11. CYCLOPHOSPHAMIDE [Concomitant]
     Active Substance: CYCLOPHOSPHAMIDE
     Indication: Glomerulonephritis membranous
     Dosage: 200 MILLIGRAM, ONCE A DAY, 2MG/KG/DAY) IN MONTHS 2, 4 AND 6.
     Route: 065

REACTIONS (7)
  - Glomerulonephritis membranous [Unknown]
  - Proteinuria [Recovering/Resolving]
  - Disease progression [Recovering/Resolving]
  - Renal impairment [Recovering/Resolving]
  - Genital herpes [Recovered/Resolved]
  - Prerenal failure [Recovering/Resolving]
  - Product use in unapproved indication [Unknown]
